FAERS Safety Report 12397777 (Version 2)
Quarter: 2016Q2

REPORT INFORMATION
  Report Type: Spontaneous
  Country: CN (occurrence: CN)
  Receive Date: 20160524
  Receipt Date: 20160526
  Transmission Date: 20160815
  Serious: Yes (Hospitalization)
  Sender: FDA-Public Use
  Company Number: CN-ASTRAZENECA-2016SE54412

PATIENT
  Age: 64 Year
  Sex: Male
  Weight: 97 kg

DRUGS (7)
  1. BYETTA [Suspect]
     Active Substance: EXENATIDE
     Indication: TYPE 2 DIABETES MELLITUS
     Dosage: 10 MCG TWO TIMES A DAY
     Route: 058
     Dates: start: 201601
  2. HAIKUN SHENXI JIAONANG [Concomitant]
     Dates: start: 201601
  3. ALPROSTADIL. [Concomitant]
     Active Substance: ALPROSTADIL
  4. ALPROSTADIL. [Concomitant]
     Active Substance: ALPROSTADIL
     Dates: start: 201601
  5. MEDICINAL CHARCOAL [Concomitant]
     Dates: start: 201601
  6. JINSHUIBAO [Concomitant]
  7. NIAODUGING [Concomitant]

REACTIONS (8)
  - Chronic kidney disease [Not Recovered/Not Resolved]
  - Vomiting [Recovered/Resolved]
  - Blood glucose fluctuation [Unknown]
  - Weight decreased [Unknown]
  - Renal ischaemia [Unknown]
  - Dehydration [Recovered/Resolved]
  - Adverse drug reaction [Unknown]
  - Blood glucose increased [Unknown]

NARRATIVE: CASE EVENT DATE: 20160224
